FAERS Safety Report 5928482-4 (Version None)
Quarter: 2008Q4

REPORT INFORMATION
  Report Type: 
  Country: None (occurrence: None)
  Receive Date: 20081020
  Receipt Date: 20081007
  Transmission Date: 20090506
  Serious: Yes (Hospitalization)
  Sender: FDA-Public Use
  Company Number: VISP-NO-0810S-0506

PATIENT
  Age: 59 Year
  Sex: Female

DRUGS (11)
  1. VISIPAQUE [Suspect]
     Indication: FEMORAL ARTERIAL STENOSIS
     Dosage: NR, SINGLE DOSE, I.A.
     Route: 014
     Dates: start: 20070416, end: 20070416
  2. VISIPAQUE [Suspect]
     Indication: FEMORAL ARTERIAL STENOSIS
     Dosage: NR, SINGLE DOSE, I.A.
     Route: 014
     Dates: start: 20070712, end: 20070712
  3. FUROSEMIDE (DIURAL) [Concomitant]
  4. ROSIGLITAZON MALEATE (AVANDIA) [Concomitant]
  5. FLUOXETINE [Concomitant]
  6. METFORMIN HYDROCHLORIDE [Concomitant]
  7. SIMVASTATIN [Concomitant]
  8. OXYCODON HYDROCHLORIDE (OXYCONTIN) [Concomitant]
  9. HYDROXIZINE HYDROCHLORIDE (ATARAX) [Concomitant]
  10. ACETAMINOPHEN [Concomitant]
  11. OXYCODON HYDROCHLORIDE (OXYNORM) [Concomitant]

REACTIONS (11)
  - BACTERIAL INFECTION [None]
  - CLOSTRIDIUM DIFFICILE COLITIS [None]
  - COGNITIVE DISORDER [None]
  - DIABETIC NEPHROPATHY [None]
  - FALL [None]
  - GENERAL PHYSICAL CONDITION ABNORMAL [None]
  - HYPERKALAEMIA [None]
  - HYPONATRAEMIA [None]
  - METABOLIC ACIDOSIS [None]
  - RENAL FAILURE ACUTE [None]
  - RENAL FAILURE CHRONIC [None]
